FAERS Safety Report 7852913-6 (Version None)
Quarter: 2011Q4

REPORT INFORMATION
  Report Type: 
  Country: None (occurrence: None)
  Receive Date: 20111026
  Receipt Date: 20111002
  Transmission Date: 20120403
  Serious: No
  Sender: FDA-Public Use
  Company Number: US-BAYER-2011-095514

PATIENT
  Age: 16 Year
  Sex: Female
  Weight: 61.224 kg

DRUGS (1)
  1. ALEVE (CAPLET) [Suspect]
     Dosage: BOTTLE COUNT 24S
     Route: 048
     Dates: start: 20111002

REACTIONS (2)
  - NAUSEA [None]
  - HEADACHE [None]
